FAERS Safety Report 9508899 (Version 2)
Quarter: 2013Q3

REPORT INFORMATION
  Report Type: Spontaneous
  Country: US (occurrence: US)
  Receive Date: 20130909
  Receipt Date: 20130909
  Transmission Date: 20140515
  Serious: No
  Sender: FDA-Public Use
  Company Number: US-BRISTOL-MYERS SQUIBB COMPANY-19102797

PATIENT
  Age: 26 Year
  Sex: Male
  Weight: 185 kg

DRUGS (4)
  1. ABILIFY INJECTION [Suspect]
     Indication: SCHIZOPHRENIA
     Dosage: ABILIFY MAINTENA INJECTION
     Route: 030
     Dates: start: 20130604
  2. ABILIFY DISCMELT TABS [Suspect]
     Indication: SCHIZOPHRENIA
     Route: 048
     Dates: start: 2013, end: 20130621
  3. SEROQUEL [Concomitant]
  4. BENZODIAZEPINES [Concomitant]

REACTIONS (2)
  - Paranoia [Unknown]
  - Irritability [Unknown]
